FAERS Safety Report 9083088 (Version 1)
Quarter: 2013Q1

REPORT INFORMATION
  Report Type: Report from Study
  Country: US (occurrence: US)
  Receive Date: 20130131
  Receipt Date: 20130131
  Transmission Date: 20140127
  Serious: No
  Sender: FDA-Public Use
  Company Number: US-ABBOTT-12P-163-0992410-00

PATIENT
  Age: 30 Year
  Sex: Male

DRUGS (9)
  1. HUMIRA [Suspect]
     Indication: RHEUMATOID ARTHRITIS
  2. HUMALOG INSULIN PUMP [Concomitant]
     Indication: PRODUCT USED FOR UNKNOWN INDICATION
  3. CRESTOR [Concomitant]
     Indication: BLOOD CHOLESTEROL INCREASED
     Dosage: AT NIGHT
  4. PAXIL [Concomitant]
     Indication: DEPRESSION
     Dosage: AT NIGHT
  5. NORVASC [Concomitant]
     Indication: HYPERTENSION
     Dosage: IN THE AM
  6. LISINOPRIL [Concomitant]
     Indication: HYPERTENSION
  7. ADDERALL [Concomitant]
     Indication: ATTENTION DEFICIT/HYPERACTIVITY DISORDER
  8. WELLBUTRIN SR [Concomitant]
     Indication: DEPRESSION
  9. LUVOX [Concomitant]
     Indication: ANXIETY DISORDER

REACTIONS (1)
  - Injection site pain [Recovered/Resolved]
